FAERS Safety Report 11339915 (Version 1)
Quarter: 2015Q3

REPORT INFORMATION
  Report Type: Spontaneous
  Country: US (occurrence: None)
  Receive Date: 20150804
  Receipt Date: 20150804
  Transmission Date: 20151125
  Serious: Yes (Other)
  Sender: FDA-Public Use
  Company Number: None

PATIENT
  Age: 71 Year
  Sex: Male
  Weight: 72.58 kg

DRUGS (6)
  1. SILDENAFIL. [Suspect]
     Active Substance: SILDENAFIL
     Indication: ERECTILE DYSFUNCTION
     Dosage: 1/2 TABLET, TAKEN BY MOUTH
  2. LOVASTATIN. [Concomitant]
     Active Substance: LOVASTATIN
  3. VITAMIN D [Concomitant]
     Active Substance: CHOLECALCIFEROL
  4. IBUPROFEN. [Concomitant]
     Active Substance: IBUPROFEN
  5. ALLOPURINOL. [Concomitant]
     Active Substance: ALLOPURINOL
  6. FINASTERIDE. [Concomitant]
     Active Substance: FINASTERIDE

REACTIONS (2)
  - Blindness transient [None]
  - Blindness unilateral [None]

NARRATIVE: CASE EVENT DATE: 20150101
